FAERS Safety Report 18045376 (Version 4)
Quarter: 2020Q4

REPORT INFORMATION
  Report Type: Spontaneous
  Country: IT (occurrence: IT)
  Receive Date: 20200720
  Receipt Date: 20201126
  Transmission Date: 20210113
  Serious: Yes (Life-Threatening, Other)
  Sender: FDA-Public Use
  Company Number: IT-JNJFOC-20200711831

PATIENT
  Age: 49 Year
  Sex: Female

DRUGS (3)
  1. CLOZAPINE. [Suspect]
     Active Substance: CLOZAPINE
     Indication: PRODUCT USED FOR UNKNOWN INDICATION
     Dosage: ; IN TOTAL,  100 MG 28 TABLETS X 12 PACKAGES
     Route: 065
     Dates: start: 20200622, end: 20200622
  2. TRIATEC                            /00885601/ [Suspect]
     Active Substance: RAMIPRIL
     Indication: PRODUCT USED FOR UNKNOWN INDICATION
     Dosage: ; IN TOTAL,  5 MG X 4 PACKAGES
     Route: 048
     Dates: start: 20200622, end: 20200622
  3. SERENASE [HALOPERIDOL] [Suspect]
     Active Substance: HALOPERIDOL
     Indication: PRODUCT USED FOR UNKNOWN INDICATION
     Dosage: ; IN TOTAL,  2 MG X 2 BOTTLES
     Route: 048
     Dates: start: 20200622, end: 20200622

REACTIONS (3)
  - Poisoning [Recovering/Resolving]
  - Suicide attempt [Recovering/Resolving]
  - Overdose [Unknown]

NARRATIVE: CASE EVENT DATE: 20200622
